FAERS Safety Report 6604244-X (Version None)
Quarter: 2010Q1

REPORT INFORMATION
  Report Type: 
  Country: None (occurrence: None)
  Receive Date: 20100226
  Receipt Date: 20090731
  Transmission Date: 20100710
  Serious: No
  Sender: FDA-Public Use
  Company Number: A0797638A

PATIENT
  Age: 61 Year
  Sex: Female

DRUGS (3)
  1. LAMICTAL CD [Suspect]
     Indication: DEPRESSION
     Dosage: 100MG SEE DOSAGE TEXT
     Route: 048
     Dates: end: 20090101
  2. SYNTHROID [Concomitant]
  3. OXYCONTIN [Concomitant]

REACTIONS (3)
  - DRUG ADMINISTRATION ERROR [None]
  - DYSGEUSIA [None]
  - INSOMNIA [None]
